FAERS Safety Report 5052348-8 (Version None)
Quarter: 2006Q3

REPORT INFORMATION
  Report Type: 
  Country: None (occurrence: None)
  Receive Date: 20060717
  Receipt Date: 20060706
  Transmission Date: 20061208
  Serious: Yes (Hospitalization)
  Sender: FDA-Public Use
  Company Number: DE-JNJFOC-20060701299

PATIENT
  Sex: Male

DRUGS (19)
  1. HALDOL [Suspect]
     Route: 048
  2. HALDOL [Suspect]
     Indication: DRUG USE FOR UNKNOWN INDICATION
     Route: 048
  3. SAROTEN [Suspect]
     Dosage: GIVEN ORALLY
  4. SAROTEN [Suspect]
     Indication: DEPRESSION
     Dosage: GIVEN INTRAVENOUSLY
  5. VENLAFAXINE HCL [Suspect]
     Route: 048
  6. VENLAFAXINE HCL [Suspect]
     Indication: DEPRESSION
     Route: 048
  7. MIRTAZAPINE [Suspect]
     Indication: DRUG USE FOR UNKNOWN INDICATION
     Route: 048
  8. TAVOR [Suspect]
     Indication: DRUG USE FOR UNKNOWN INDICATION
     Route: 048
  9. QUINOLUM RETARD [Suspect]
     Route: 048
  10. QUINOLUM RETARD [Suspect]
     Indication: DRUG USE FOR UNKNOWN INDICATION
     Route: 048
  11. SEROQUEL [Suspect]
  12. SEROQUEL [Suspect]
  13. SEROQUEL [Suspect]
  14. SEROQUEL [Suspect]
     Indication: DRUG USE FOR UNKNOWN INDICATION
  15. DOCITON [Suspect]
     Indication: DRUG USE FOR UNKNOWN INDICATION
  16. PRAVASIN [Suspect]
     Indication: DRUG USE FOR UNKNOWN INDICATION
  17. THYROXIN [Suspect]
     Indication: DRUG USE FOR UNKNOWN INDICATION
  18. AZATHIOPRINE [Suspect]
     Indication: DRUG USE FOR UNKNOWN INDICATION
  19. TRUXAL [Suspect]
     Indication: DRUG USE FOR UNKNOWN INDICATION
     Route: 048

REACTIONS (1)
  - DELIRIUM [None]
